FAERS Safety Report 7224324-8 (Version None)
Quarter: 2011Q1

REPORT INFORMATION
  Report Type: 
  Country: None (occurrence: None)
  Receive Date: 20110113
  Receipt Date: 20110106
  Transmission Date: 20110831
  Serious: Yes (Hospitalization, Other)
  Sender: FDA-Public Use
  Company Number: US-PFIZER INC-2010110278

PATIENT
  Sex: Male

DRUGS (7)
  1. DIAZEPAM [Concomitant]
     Indication: ANXIETY
     Dosage: UNK
     Dates: start: 20050601, end: 20090601
  2. MORPHINE [Concomitant]
     Indication: PAIN
     Dosage: UNK
     Dates: start: 20060401, end: 20090601
  3. CITALOPRAM [Concomitant]
     Indication: ANXIETY
     Dosage: UNK
     Dates: start: 20050601, end: 20090601
  4. HYDROCODONE [Concomitant]
     Indication: PAIN
     Dosage: UNK
     Dates: start: 20060401, end: 20090601
  5. OXYCODONE [Concomitant]
     Indication: PAIN
     Dosage: UNK
     Dates: start: 20030601, end: 20090101
  6. FLEXERIL [Concomitant]
     Indication: PAIN
     Dosage: UNK
     Dates: start: 20060401, end: 20090601
  7. CHANTIX [Suspect]
     Indication: SMOKING CESSATION THERAPY
     Dosage: 2 MG, UNK
     Dates: start: 20071105, end: 20080205

REACTIONS (8)
  - SUICIDE ATTEMPT [None]
  - INTENTIONAL OVERDOSE [None]
  - INSOMNIA [None]
  - DEPRESSION [None]
  - DYSKINESIA [None]
  - HALLUCINATION [None]
  - LOSS OF CONSCIOUSNESS [None]
  - PARANOIA [None]
